FAERS Safety Report 4802553-8 (Version None)
Quarter: 2005Q4

REPORT INFORMATION
  Report Type: 
  Country: None (occurrence: None)
  Receive Date: 20051013
  Receipt Date: 20050719
  Transmission Date: 20060501
  Serious: Yes (Other)
  Sender: FDA-Public Use
  Company Number: 200507IM000324

PATIENT
  Age: 83 Year
  Sex: Male
  Weight: 65.318 kg

DRUGS (8)
  1. ACTIMMUNE [Suspect]
     Indication: IDIOPATHIC PULMONARY FIBROSIS
     Dosage: 200 UG, TIW, SUBCUTANEOUS
     Route: 058
     Dates: start: 20050101
  2. ACTONEL [Concomitant]
  3. OXYGEN [Concomitant]
  4. NASACORT AG [Concomitant]
  5. ALBUTEROL [Concomitant]
  6. SYNTHROID [Concomitant]
  7. OCUVITE [Concomitant]
  8. OSCAL [Concomitant]

REACTIONS (9)
  - ASTHENIA [None]
  - CEREBROVASCULAR ACCIDENT [None]
  - DISEASE PROGRESSION [None]
  - FEELING HOT [None]
  - IDIOPATHIC PULMONARY FIBROSIS [None]
  - NAUSEA [None]
  - PAIN [None]
  - RIB FRACTURE [None]
  - TREMOR [None]
